FAERS Safety Report 20662802 (Version 4)
Quarter: 2022Q3

REPORT INFORMATION
  Report Type: Report from Study
  Country: US (occurrence: US)
  Receive Date: 20220401
  Receipt Date: 20220704
  Transmission Date: 20221026
  Serious: No
  Sender: FDA-Public Use
  Company Number: US-NOVARTISTESTPH-NVSC2022US073410

PATIENT
  Sex: Female

DRUGS (1)
  1. ILARIS [Suspect]
     Active Substance: CANAKINUMAB
     Indication: Juvenile idiopathic arthritis
     Dosage: 70 MG, EVERY 42 DAYS
     Route: 058
     Dates: start: 20210726

REACTIONS (4)
  - COVID-19 [Unknown]
  - Incorrect dose administered [Unknown]
  - Underdose [Unknown]
  - Off label use [Unknown]
